FAERS Safety Report 9278523 (Version 1)
Quarter: 2013Q2

REPORT INFORMATION
  Report Type: Report from Study
  Country: US (occurrence: US)
  Receive Date: 20130507
  Receipt Date: 20130507
  Transmission Date: 20140414
  Serious: Yes (Other)
  Sender: FDA-Public Use
  Company Number: US-RB-024444-11

PATIENT
  Age: 52 Year
  Sex: Female

DRUGS (2)
  1. SUBOXONE TABLET [Suspect]
     Route: 048
     Dates: start: 2011, end: 2012
  2. SUBOXONE TABLET [Suspect]
     Indication: DRUG DEPENDENCE
     Route: 048
     Dates: start: 2012, end: 2013

REACTIONS (7)
  - Depression [Not Recovered/Not Resolved]
  - Visual acuity reduced [Not Recovered/Not Resolved]
  - Hepatitis C [Recovered/Resolved]
  - Condition aggravated [Recovered/Resolved]
  - Liver function test abnormal [Unknown]
  - Incorrect route of drug administration [Recovered/Resolved]
  - Wrong technique in drug usage process [Recovered/Resolved]
